FAERS Safety Report 18318076 (Version 7)
Quarter: 2021Q1

REPORT INFORMATION
  Report Type: Spontaneous
  Country: US (occurrence: US)
  Receive Date: 20200928
  Receipt Date: 20210203
  Transmission Date: 20210419
  Serious: Yes (Hospitalization, Other)
  Sender: FDA-Public Use
  Company Number: US-PFIZER INC-2020369123

PATIENT
  Age: 66 Year
  Sex: Male

DRUGS (2)
  1. DILANTIN [Suspect]
     Active Substance: PHENYTOIN
     Indication: SEIZURE
  2. DILANTIN [Suspect]
     Active Substance: PHENYTOIN
     Indication: EPILEPSY
     Dosage: UNK, 2X/DAY (TWICE DAILY FOR 51 YEARS/TWICE EVERY DAY)
     Dates: start: 1966, end: 20160828

REACTIONS (8)
  - Blindness unilateral [Not Recovered/Not Resolved]
  - Gingival disorder [Not Recovered/Not Resolved]
  - Bone density decreased [Not Recovered/Not Resolved]
  - Loss of employment [Not Recovered/Not Resolved]
  - Mental disorder [Unknown]
  - Fall [Not Recovered/Not Resolved]
  - Seizure [Recovered/Resolved]
  - Tooth loss [Not Recovered/Not Resolved]

NARRATIVE: CASE EVENT DATE: 2016
